FAERS Safety Report 11009642 (Version 1)
Quarter: 2015Q2

REPORT INFORMATION
  Report Type: Spontaneous
  Country: US (occurrence: US)
  Receive Date: 20150410
  Receipt Date: 20150410
  Transmission Date: 20150821
  Serious: No
  Sender: FDA-Public Use
  Company Number: US-BEH-2014043024

PATIENT
  Age: 33 Year
  Sex: Female

DRUGS (2)
  1. RHOPHYLAC [Suspect]
     Active Substance: HUMAN RHO(D) IMMUNE GLOBULIN
     Indication: ABORTION SPONTANEOUS
     Dosage: 6402/892,08/2012
     Dates: start: 20140601, end: 20140601
  2. RHOPHYLAC [Suspect]
     Active Substance: HUMAN RHO(D) IMMUNE GLOBULIN
     Indication: ABORTION
     Dosage: 6402/892,08/2012
     Dates: start: 20140601, end: 20140601

REACTIONS (3)
  - Back pain [Recovered/Resolved]
  - Abdominal pain [Recovered/Resolved]
  - Diarrhoea [Recovered/Resolved]

NARRATIVE: CASE EVENT DATE: 20140601
